FAERS Safety Report 8494521-2 (Version None)
Quarter: 2012Q2

REPORT INFORMATION
  Report Type: 
  Country: None (occurrence: None)
  Receive Date: 20120627
  Receipt Date: 20120613
  Transmission Date: 20120825
  Serious: Yes (Other)
  Sender: FDA-Public Use
  Company Number: JP-2012-15526

PATIENT
  Age: 87 Year
  Sex: Female

DRUGS (1)
  1. SAMSCA [Suspect]
     Indication: CARDIAC FAILURE
     Dosage: ORAL
     Route: 048

REACTIONS (2)
  - PNEUMONIA [None]
  - PLEURAL EFFUSION [None]
